FAERS Safety Report 14139262 (Version 1)
Quarter: 2017Q4

REPORT INFORMATION
  Report Type: Report from Study
  Country: None (occurrence: BR)
  Receive Date: 20171028
  Receipt Date: 20171028
  Transmission Date: 20180321
  Serious: Yes (Other)
  Sender: FDA-Public Use
  Company Number: BR-ABBVIE-17K-020-2139011-00

PATIENT
  Age: 65 Year
  Sex: Female
  Weight: 85 kg

DRUGS (7)
  1. SODIUM CHLORIDE. [Concomitant]
     Active Substance: SODIUM CHLORIDE
     Indication: NASAL DISORDER
  2. NEBILET [Concomitant]
     Active Substance: NEBIVOLOL
     Indication: ARRHYTHMIA
  3. TIMOPTOL [Concomitant]
     Active Substance: TIMOLOL
     Indication: GLAUCOMA
  4. PRISTIQ EXTENDED-RELEASE [Concomitant]
     Active Substance: DESVENLAFAXINE SUCCINATE
     Indication: DEPRESSION
  5. OTOSPORIN [Concomitant]
     Active Substance: HYDROCORTISONE\NEOMYCIN SULFATE\POLYMYXIN B SULFATE
     Indication: EAR PAIN
  6. SINVASTACOR [Concomitant]
     Active Substance: SIMVASTATIN
     Indication: HEPATIC STEATOSIS
  7. HUMIRA [Suspect]
     Active Substance: ADALIMUMAB
     Indication: ANKYLOSING SPONDYLITIS
     Route: 058
     Dates: start: 20150909

REACTIONS (15)
  - Fatigue [Recovering/Resolving]
  - Insomnia [Unknown]
  - Obstructive airways disorder [Unknown]
  - Pneumonia [Recovering/Resolving]
  - Dysphonia [Recovering/Resolving]
  - Hypotension [Recovered/Resolved]
  - Hyperhidrosis [Recovering/Resolving]
  - Nasopharyngitis [Recovering/Resolving]
  - Gastrointestinal infection [Recovering/Resolving]
  - Abdominal pain upper [Unknown]
  - Asthma [Recovering/Resolving]
  - Immunodeficiency [Unknown]
  - Psychiatric symptom [Unknown]
  - Vitamin D deficiency [Recovering/Resolving]
  - Dyspepsia [Recovering/Resolving]

NARRATIVE: CASE EVENT DATE: 201709
